FAERS Safety Report 8163609-8 (Version None)
Quarter: 2012Q1

REPORT INFORMATION
  Report Type: 
  Country: None (occurrence: None)
  Receive Date: 20120224
  Receipt Date: 20120222
  Transmission Date: 20120608
  Serious: Yes (Other)
  Sender: FDA-Public Use
  Company Number: US-PFIZER INC-2012047638

PATIENT
  Sex: Female
  Weight: 68 kg

DRUGS (2)
  1. CELEXA [Concomitant]
     Indication: DEPRESSION
     Dosage: UNK
  2. CHANTIX [Suspect]
     Indication: SMOKING CESSATION THERAPY
     Dosage: 0.5 MG, 1X/DAY
     Route: 048
     Dates: start: 20090101, end: 20090101

REACTIONS (2)
  - MUSCULOSKELETAL DISORDER [None]
  - MENISCUS LESION [None]
